FAERS Safety Report 10393066 (Version 1)
Quarter: 2014Q3

REPORT INFORMATION
  Report Type: Spontaneous
  Country: ES (occurrence: None)
  Receive Date: 20140815
  Receipt Date: 20140815
  Transmission Date: 20150326
  Serious: Yes (Death)
  Sender: FDA-Public Use
  Company Number: 2014ES01045

PATIENT
  Age: 78 Year
  Sex: Female

DRUGS (4)
  1. CARBOPLATIN (CARBOPLATIN) INJECTION [Suspect]
     Active Substance: CARBOPLATIN
     Indication: OVARIAN CANCER STAGE IV
     Dosage: 3 TO 4 CYCLES
  2. PACLITAXEL (PACLITAXEL) [Suspect]
     Active Substance: PACLITAXEL
     Indication: OVARIAN CANCER STAGE IV
     Dosage: 60 MG/M**2, USING THE OPEN TECHNIQUE, OVER 60 MIN, MAINTAINING A CONSTANT INTRAABDOMINAL TEMP 42 C
  3. PACLITAXEL (PACLITAXEL) [Suspect]
     Active Substance: PACLITAXEL
     Indication: OVARIAN CANCER STAGE IV
     Dosage: 3 TO 4 CYCLES
  4. CISPLATIN (CISPLATIN) [Suspect]
     Active Substance: CISPLATIN
     Indication: OVARIAN CANCER STAGE IV
     Dosage: 75 MG/M**2, USING THE OPEN TECHNIQUE, OVER 60 MIN,  MAINTAINING A CONSTANT INTRAABDOMINAL TEMP 42 C

REACTIONS (1)
  - Death [None]
